FAERS Safety Report 9102660 (Version 3)
Quarter: 2013Q1

REPORT INFORMATION
  Report Type: Spontaneous
  Country: DE (occurrence: DE)
  Receive Date: 20130219
  Receipt Date: 20130327
  Transmission Date: 20140127
  Serious: Yes (Death, Life-Threatening, Hospitalization)
  Sender: FDA-Public Use
  Company Number: DE-INCYTE CORPORATION-2013IN000323

PATIENT
  Sex: Male

DRUGS (5)
  1. JAKAVI [Suspect]
     Indication: CHRONIC MYELOID LEUKAEMIA
     Dosage: 5 MG, BID
     Route: 048
     Dates: start: 20121217, end: 20130107
  2. BELOC ZOK [Concomitant]
  3. SIMVASTATIN [Concomitant]
  4. NOVALGINE [Concomitant]
  5. PANTOZOL [Concomitant]

REACTIONS (10)
  - Sepsis [Fatal]
  - Chronic myelomonocytic leukaemia [Fatal]
  - Malignant neoplasm progression [Fatal]
  - Cardiac failure [Recovering/Resolving]
  - Leukocytosis [Recovering/Resolving]
  - Cardiac arrest [Recovering/Resolving]
  - Thrombosis [Recovering/Resolving]
  - Dyspnoea [Recovering/Resolving]
  - Oedema peripheral [Recovering/Resolving]
  - Pulmonary oedema [Recovering/Resolving]
